FAERS Safety Report 20192572 (Version 1)
Quarter: 2021Q4

REPORT INFORMATION
  Report Type: Spontaneous
  Country: DE (occurrence: DE)
  Receive Date: 20211216
  Receipt Date: 20211216
  Transmission Date: 20220303
  Serious: Yes (Hospitalization)
  Sender: FDA-Public Use
  Company Number: DE-NOVARTISPH-NVSC2021DE284460

PATIENT
  Age: 36 Year
  Sex: Male

DRUGS (2)
  1. ATORVASTATIN [Suspect]
     Active Substance: ATORVASTATIN
     Indication: Product used for unknown indication
     Dosage: 40 MG, QD
     Route: 048
  2. ASPIRIN [Concomitant]
     Active Substance: ASPIRIN
     Indication: Product used for unknown indication
     Dosage: 100 MG, QD
     Route: 048

REACTIONS (8)
  - Arrhythmia [Unknown]
  - Muscular weakness [Unknown]
  - Syncope [Unknown]
  - Tachycardia [Unknown]
  - Palpitations [Unknown]
  - Hyperhidrosis [Unknown]
  - Night sweats [Unknown]
  - Myalgia [Unknown]
